FAERS Safety Report 6974899-9 (Version None)
Quarter: 2010Q3

REPORT INFORMATION
  Report Type: 
  Country: None (occurrence: None)
  Receive Date: 20100909
  Receipt Date: 20090317
  Transmission Date: 20110219
  Serious: No
  Sender: FDA-Public Use
  Company Number: US-WYE-H07539209

PATIENT
  Sex: Female
  Weight: 56.75 kg

DRUGS (7)
  1. PRISTIQ [Suspect]
     Indication: DEPRESSION
     Route: 048
     Dates: start: 20081202, end: 20090107
  2. PROAIR HFA [Concomitant]
  3. THYROID TAB [Concomitant]
  4. ALPRAZOLAM [Concomitant]
  5. SPIRIVA [Concomitant]
  6. QVAR 40 [Concomitant]
  7. AMBIEN [Concomitant]

REACTIONS (6)
  - CRYING [None]
  - HUNGER [None]
  - LACK OF SATIETY [None]
  - MIDDLE INSOMNIA [None]
  - RASH [None]
  - RENAL PAIN [None]
